FAERS Safety Report 21326747 (Version 3)
Quarter: 2022Q4

REPORT INFORMATION
  Report Type: Report from Study
  Country: US (occurrence: US)
  Receive Date: 20220913
  Receipt Date: 20221219
  Transmission Date: 20230113
  Serious: No
  Sender: FDA-Public Use
  Company Number: US-NOVARTISTESTPH-NVSC2022US205981

PATIENT
  Sex: Female

DRUGS (1)
  1. ENTRESTO [Suspect]
     Active Substance: SACUBITRIL\VALSARTAN
     Indication: Aortic valve stenosis
     Dosage: 1.5 DOSAGE FORM, QD (HALF TAB IN MORNING, 1 TAB IN EVENING)
     Route: 048

REACTIONS (1)
  - Wrong technique in product usage process [Unknown]
